FAERS Safety Report 14400828 (Version 5)
Quarter: 2019Q1

REPORT INFORMATION
  Report Type: Report from Study
  Country: JP (occurrence: JP)
  Receive Date: 20180117
  Receipt Date: 20190315
  Transmission Date: 20190417
  Serious: Yes (Other)
  Sender: FDA-Public Use
  Company Number: JP-AMGEN-JPNCT2017093501

PATIENT
  Sex: Male
  Weight: 63.5 kg

DRUGS (11)
  1. PANITUMUMAB [Suspect]
     Active Substance: PANITUMUMAB
     Dosage: 380 MILLIGRAM, Q2WK
     Route: 041
     Dates: start: 20170627, end: 20171017
  2. OXALIPLATIN. [Concomitant]
     Active Substance: OXALIPLATIN
     Indication: RECTAL CANCER
     Dosage: 140 MG, Q2WEEKS
     Route: 041
     Dates: start: 20170405, end: 20171017
  3. PANITUMUMAB [Suspect]
     Active Substance: PANITUMUMAB
     Indication: RECTAL CANCER
     Dosage: 380 MILLIGRAM, Q2WK
     Route: 041
     Dates: start: 20170405, end: 20170530
  4. 5-FU [Concomitant]
     Active Substance: FLUOROURACIL
     Dosage: 2000 MG/M2, Q2WK
     Route: 041
     Dates: start: 20170808, end: 20171017
  5. 5-FU [Concomitant]
     Active Substance: FLUOROURACIL
     Indication: RECTAL CANCER
     Dosage: 650 MG, Q2WK
     Route: 040
     Dates: start: 20170405, end: 20170725
  6. 5-FU [Concomitant]
     Active Substance: FLUOROURACIL
     Dosage: UNK
     Route: 041
     Dates: start: 20180220
  7. CALCIUM LEVOFOLINATE [Concomitant]
     Active Substance: LEVOLEUCOVORIN CALCIUM
     Dosage: UNK UNK, Q2WEEKS
     Route: 041
     Dates: start: 20170808, end: 20171017
  8. 5-FU [Concomitant]
     Active Substance: FLUOROURACIL
     Dosage: UNK
     Route: 040
     Dates: start: 20180220
  9. CALCIUM LEVOFOLINATE [Concomitant]
     Active Substance: LEVOLEUCOVORIN CALCIUM
     Indication: RECTAL CANCER
     Dosage: 337 MG, Q2WEEKS
     Route: 041
     Dates: start: 20170405, end: 20170725
  10. 5-FU [Concomitant]
     Active Substance: FLUOROURACIL
     Dosage: 200 MG/M2, Q2WK
     Route: 040
     Dates: start: 20170808, end: 20171017
  11. 5-FU [Concomitant]
     Active Substance: FLUOROURACIL
     Dosage: 4000 MG, Q2WEEKS
     Route: 041
     Dates: start: 20170405, end: 20170725

REACTIONS (15)
  - Pigmentation disorder [Recovered/Resolved]
  - Hypotension [Recovered/Resolved]
  - Stomatitis [Recovered/Resolved]
  - Stomatitis [Unknown]
  - Decreased appetite [Recovered/Resolved]
  - Soft tissue infection [Recovering/Resolving]
  - Atrial fibrillation [Recovered/Resolved]
  - Oedema peripheral [Recovered/Resolved]
  - Fatigue [Recovered/Resolved]
  - Drug eruption [Recovering/Resolving]
  - Palmar-plantar erythrodysaesthesia syndrome [Recovering/Resolving]
  - Dermatitis acneiform [Recovering/Resolving]
  - Peripheral sensory neuropathy [Recovering/Resolving]
  - Dry skin [Recovering/Resolving]
  - Stomatitis [Recovered/Resolved]
